FAERS Safety Report 7580091-X (Version None)
Quarter: 2011Q2

REPORT INFORMATION
  Report Type: 
  Country: None (occurrence: None)
  Receive Date: 20110629
  Receipt Date: 20110617
  Transmission Date: 20111010
  Serious: Yes (Other)
  Sender: FDA-Public Use
  Company Number: CA-ELI_LILLY_AND_COMPANY-CA201106005115

PATIENT
  Sex: Male

DRUGS (12)
  1. REMERON [Concomitant]
  2. ZYPREXA ZYDIS [Suspect]
     Dosage: 10 MG, EACH EVENING
  3. VENLAFAXINE [Concomitant]
  4. SERTRALINE [Concomitant]
  5. ZYPREXA ZYDIS [Suspect]
     Dosage: 50 MG, QD
  6. LORAZEPAM [Concomitant]
  7. ZYPREXA ZYDIS [Suspect]
     Indication: SCHIZOAFFECTIVE DISORDER
     Dosage: 15 MG, QD
     Dates: start: 20051107
  8. ZYPREXA [Suspect]
     Indication: SCHIZOAFFECTIVE DISORDER
     Dosage: 15 MG, EACH EVENING
  9. BUPROPION HCL [Concomitant]
  10. CITALOPRAM HYDROBROMIDE [Concomitant]
  11. FLUANXOL [Concomitant]
  12. RISPERDAL [Concomitant]

REACTIONS (9)
  - CORONARY ARTERY DISEASE [None]
  - DIABETES MELLITUS [None]
  - SILENT MYOCARDIAL INFARCTION [None]
  - BUNDLE BRANCH BLOCK [None]
  - HYPERLIPIDAEMIA [None]
  - HYPERTENSION [None]
  - HEPATIC STEATOSIS [None]
  - WEIGHT INCREASED [None]
  - OVERDOSE [None]
